FAERS Safety Report 9741041 (Version 1)
Quarter: 2013Q4

REPORT INFORMATION
  Report Type: Spontaneous
  Country: US (occurrence: US)
  Receive Date: 20131209
  Receipt Date: 20131209
  Transmission Date: 20140711
  Serious: Yes (Other)
  Sender: FDA-Public Use
  Company Number: US-PFIZER INC-2013349543

PATIENT
  Age: 64 Year
  Sex: Female
  Weight: 77.1 kg

DRUGS (5)
  1. LYRICA [Suspect]
     Dosage: 50 MG, 3X/DAY
     Dates: start: 2013, end: 2013
  2. GABAPENTIN [Concomitant]
     Dosage: 1200 MG (4 TABLETS OF 300 MG), 2X/DAY
  3. LEVOTHYROXINE [Concomitant]
     Indication: THYROID DISORDER
     Dosage: 150 UG, 1X/DAY
  4. PREDNISONE [Concomitant]
     Dosage: 5 MG, 1X/DAY
  5. EFFEXOR-XR [Concomitant]
     Dosage: UNK, 2X/DAY

REACTIONS (1)
  - Systemic lupus erythematosus [Unknown]
